FAERS Safety Report 20862108 (Version 1)
Quarter: 2022Q2

REPORT INFORMATION
  Report Type: Spontaneous
  Country: RU (occurrence: RU)
  Receive Date: 20220523
  Receipt Date: 20220523
  Transmission Date: 20220721
  Serious: Yes (Other)
  Sender: FDA-Public Use
  Company Number: RU-Merck Healthcare KGaA-9322683

PATIENT
  Age: 71 Year
  Sex: Male

DRUGS (2)
  1. ERBITUX [Suspect]
     Active Substance: CETUXIMAB
     Indication: Colorectal cancer metastatic
     Dosage: UNK UNK, WEEKLY (1/W)(10 COURSES)
     Route: 065
     Dates: start: 20181213
  2. IRINOTECAN [Concomitant]
     Active Substance: IRINOTECAN
     Indication: Colorectal cancer metastatic
     Dosage: 180 MG/M2, 2/M(150 - 180 MG/M2 10 COURSES)
     Dates: start: 20181213

REACTIONS (1)
  - Hyperbilirubinaemia [Unknown]
